FAERS Safety Report 15152635 (Version 1)
Quarter: 2018Q3

REPORT INFORMATION
  Report Type: Report from Study
  Country: US (occurrence: US)
  Receive Date: 20180717
  Receipt Date: 20180717
  Transmission Date: 20181010
  Serious: Yes (Hospitalization)
  Sender: FDA-Public Use
  Company Number: US-SUN PHARMACEUTICAL INDUSTRIES LTD-2013RR-168236

PATIENT
  Age: 64 Year
  Sex: Female
  Weight: 88.5 kg

DRUGS (8)
  1. COLACE [Suspect]
     Active Substance: DOCUSATE SODIUM
     Indication: CONSTIPATION
     Dosage: 100 MG, BID
     Route: 048
     Dates: start: 20140613, end: 20140620
  2. PEPCID [Concomitant]
     Active Substance: FAMOTIDINE
     Indication: PRODUCT USED FOR UNKNOWN INDICATION
     Dosage: UNK
     Route: 065
     Dates: start: 20130821, end: 20130821
  3. BLINDED MK?3222 INJECTION [Suspect]
     Active Substance: TILDRAKIZUMAB
     Indication: PSORIASIS
     Dosage: UNK (SYRINGE 1 AND SYRINGE 2)
     Route: 058
     Dates: start: 20130429
  4. LISINOPRIL. [Suspect]
     Active Substance: LISINOPRIL
     Indication: HYPERTENSION
     Dosage: 20 MG, QD
     Route: 048
     Dates: start: 20140905, end: 20171215
  5. BLINDED MK?3222 INJECTION [Suspect]
     Active Substance: TILDRAKIZUMAB
     Indication: PSORIASIS
     Dosage: UNK (SYRINGE 1 AND SYRINGE 2)
     Route: 058
     Dates: start: 20130429
  6. FAMOTIDINE. [Concomitant]
     Active Substance: FAMOTIDINE
     Indication: PRODUCT USED FOR UNKNOWN INDICATION
     Dosage: UNK (20MG)
     Route: 065
     Dates: start: 20130821, end: 20130821
  7. ONDANSETRON HYDROCHLORIDE. [Concomitant]
     Active Substance: ONDANSETRON HYDROCHLORIDE
     Indication: PROPHYLAXIS OF NAUSEA AND VOMITING
     Dosage: UNK (4MG)
     Route: 065
     Dates: start: 20130821, end: 20130821
  8. BLINDED MK?3222 PLACEBO [Suspect]
     Active Substance: TILDRAKIZUMAB
     Indication: PSORIASIS
     Dosage: UNK (SYRINGE 1 AND SYRINGE 2)
     Route: 058
     Dates: start: 20130429

REACTIONS (17)
  - Diverticulum intestinal haemorrhagic [None]
  - Hypertension [None]
  - Diverticulum [Recovered/Resolved]
  - Angioedema [Recovered/Resolved]
  - Sinus tachycardia [None]
  - Psoriasis [None]
  - Electrocardiogram T wave abnormal [None]
  - Acquired oesophageal web [None]
  - Hyperlipidaemia [None]
  - Hypomagnesaemia [None]
  - Acute respiratory failure [None]
  - Haemorrhagic anaemia [None]
  - Hypocalcaemia [None]
  - White blood cell count increased [None]
  - Hiatus hernia [None]
  - Syncope [None]
  - Hypokalaemia [None]

NARRATIVE: CASE EVENT DATE: 20130821
